FAERS Safety Report 6704362-1 (Version None)
Quarter: 2010Q2

REPORT INFORMATION
  Report Type: 
  Country: None (occurrence: None)
  Receive Date: 20100430
  Receipt Date: 20100426
  Transmission Date: 20101027
  Serious: Yes (Other)
  Sender: FDA-Public Use
  Company Number: JP-MERCK-1004USA03243

PATIENT
  Age: 93 Year
  Sex: Male

DRUGS (2)
  1. PEPCID [Suspect]
     Route: 048
  2. ANCARON [Suspect]
     Route: 065

REACTIONS (1)
  - SYSTEMIC LUPUS ERYTHEMATOSUS [None]
